FAERS Safety Report 6847705-0 (Version None)
Quarter: 2010Q3

REPORT INFORMATION
  Report Type: 
  Country: None (occurrence: None)
  Receive Date: 20100716
  Receipt Date: 20100706
  Transmission Date: 20110219
  Serious: Yes (Other)
  Sender: FDA-Public Use
  Company Number: US-PFIZER INC-2006088372

PATIENT
  Sex: Male

DRUGS (1)
  1. LIPITOR [Suspect]
     Dosage: 10 MG, 1X/DAY
     Dates: start: 20040412, end: 20040428

REACTIONS (17)
  - AMNESIA [None]
  - ANGER [None]
  - COGNITIVE DISORDER [None]
  - CONFUSIONAL STATE [None]
  - DEPRESSION [None]
  - DISORIENTATION [None]
  - EXECUTIVE DYSFUNCTION [None]
  - FATIGUE [None]
  - HEADACHE [None]
  - HOSTILITY [None]
  - IRRITABILITY [None]
  - MOOD SWINGS [None]
  - MYOPATHY [None]
  - NEUROPATHY PERIPHERAL [None]
  - PAIN [None]
  - PARAESTHESIA [None]
  - SPEECH DISORDER DEVELOPMENTAL [None]
